FAERS Safety Report 8934107 (Version 1)
Quarter: 2012Q4

REPORT INFORMATION
  Report Type: 
  Country: US (occurrence: US)
  Receive Date: 20121129
  Receipt Date: 20121129
  Transmission Date: 20130627
  Serious: Yes (Hospitalization)
  Sender: FDA-Public Use
  Company Number: US-GLAXOSMITHKLINE-A0962711A

PATIENT
  Age: 46 Year
  Sex: Male

DRUGS (6)
  1. WELLBUTRIN SR [Suspect]
     Indication: DEPRESSION
     Dosage: 150MG Twice per day
     Route: 048
     Dates: start: 201001
  2. SINGULAIR [Concomitant]
  3. VITAMIN E [Concomitant]
  4. VITAMIN C [Concomitant]
  5. CALCIUM + D [Concomitant]
  6. MULTIVITAMIN [Concomitant]

REACTIONS (1)
  - Drug ineffective [Not Recovered/Not Resolved]
